FAERS Safety Report 6186337-7 (Version None)
Quarter: 2009Q2

REPORT INFORMATION
  Report Type: 
  Country: None (occurrence: None)
  Receive Date: 20090511
  Receipt Date: 20090504
  Transmission Date: 20091009
  Serious: Yes (Other)
  Sender: FDA-Public Use
  Company Number: US-WYE-H07418908

PATIENT
  Sex: Female

DRUGS (3)
  1. PREMPRO [Suspect]
  2. VAGIFEM [Suspect]
  3. FEMHRT [Suspect]

REACTIONS (1)
  - BREAST CANCER METASTATIC [None]
